FAERS Safety Report 4345600-2 (Version None)
Quarter: 2004Q2

REPORT INFORMATION
  Report Type: 
  Country: None (occurrence: None)
  Receive Date: 20040421
  Receipt Date: 20040407
  Transmission Date: 20050107
  Serious: Yes (Other)
  Sender: FDA-Public Use
  Company Number: 2004S1000066

PATIENT
  Sex: Male

DRUGS (4)
  1. CUBICIN [Suspect]
     Indication: OSTEOMYELITIS
     Dosage: 6 MG/KG; QD; IV
     Route: 042
     Dates: start: 20040301
  2. OXACILLIN [Concomitant]
  3. RIFAMPIN [Concomitant]
  4. VANCOMYCIN [Concomitant]

REACTIONS (3)
  - DRUG LEVEL INCREASED [None]
  - RENAL FAILURE ACUTE [None]
  - RENAL TUBULAR NECROSIS [None]
